FAERS Safety Report 6071341-X (Version None)
Quarter: 2009Q1

REPORT INFORMATION
  Report Type: 
  Country: None (occurrence: None)
  Receive Date: 20090209
  Receipt Date: 20090128
  Transmission Date: 20090719
  Serious: Yes (Hospitalization)
  Sender: FDA-Public Use
  Company Number: FR-GILEAD-2009-0020037

PATIENT
  Age: 23 Year
  Sex: Female

DRUGS (8)
  1. TRUVADA [Suspect]
     Indication: HIV INFECTION
     Route: 048
     Dates: start: 20081118, end: 20081121
  2. REYATAZ [Suspect]
     Indication: HIV INFECTION
     Route: 048
     Dates: start: 20081118, end: 20081121
  3. VIDEX [Concomitant]
     Indication: HIV INFECTION
     Dates: start: 20060301, end: 20081118
  4. VIDEX [Concomitant]
     Dates: start: 20081121
  5. RETROVIR [Concomitant]
     Indication: HIV INFECTION
     Dates: start: 20060301, end: 20081118
  6. RETROVIR [Concomitant]
     Dates: start: 20081121
  7. TELZIR [Concomitant]
     Indication: HIV INFECTION
     Dates: start: 20060301, end: 20081118
  8. TELZIR [Concomitant]
     Dates: start: 20081121

REACTIONS (3)
  - PAIN [None]
  - PARAESTHESIA [None]
  - VERTIGO [None]
